FAERS Safety Report 20279667 (Version 3)
Quarter: 2022Q1

REPORT INFORMATION
  Report Type: Spontaneous
  Country: US (occurrence: US)
  Receive Date: 20220103
  Receipt Date: 20220301
  Transmission Date: 20220423
  Serious: Yes (Hospitalization, Other)
  Sender: FDA-Public Use
  Company Number: US-GLAXOSMITHKLINE-US2021AMR265981

PATIENT
  Age: 56 Year
  Sex: Female

DRUGS (3)
  1. ZEJULA [Suspect]
     Active Substance: NIRAPARIB
     Indication: Ovarian cancer
     Dosage: 200 MG, QD
     Dates: start: 20211007
  2. ZEJULA [Suspect]
     Active Substance: NIRAPARIB
     Dosage: UNK
  3. ZEJULA [Suspect]
     Active Substance: NIRAPARIB
     Dosage: 200 MG, QD
     Route: 048

REACTIONS (3)
  - Platelet count decreased [Unknown]
  - Malignant neoplasm progression [Unknown]
  - Insomnia [Unknown]

NARRATIVE: CASE EVENT DATE: 20211001
